FAERS Safety Report 11126996 (Version 1)
Quarter: 2015Q2

REPORT INFORMATION
  Report Type: Spontaneous
  Country: US (occurrence: US)
  Receive Date: 20150521
  Receipt Date: 20150521
  Transmission Date: 20150821
  Serious: Yes (Other)
  Sender: FDA-Public Use
  Company Number: PHHY2015US058619

PATIENT
  Age: 94 Year
  Sex: Male

DRUGS (2)
  1. LISINOPRIL. [Suspect]
     Active Substance: LISINOPRIL
     Indication: HYPERTENSION
     Route: 065
  2. HYDROCHLOROTHIAZIDE. [Suspect]
     Active Substance: HYDROCHLOROTHIAZIDE
     Indication: HYPERTENSION
     Route: 065

REACTIONS (9)
  - Ulcer [Recovering/Resolving]
  - Erythema [Recovering/Resolving]
  - Acquired acrodermatitis enteropathica [Recovering/Resolving]
  - Lip erosion [Recovering/Resolving]
  - Scab [Recovering/Resolving]
  - Skin exfoliation [Recovering/Resolving]
  - Rash [Recovering/Resolving]
  - Eschar [Recovering/Resolving]
  - Tongue ulceration [Recovering/Resolving]
